FAERS Safety Report 11193062 (Version 1)
Quarter: 2015Q2

REPORT INFORMATION
  Report Type: Spontaneous
  Country: US (occurrence: None)
  Receive Date: 20150615
  Receipt Date: 20150615
  Transmission Date: 20150821
  Serious: Yes (Hospitalization)
  Sender: FDA-Public Use
  Company Number: None

PATIENT
  Age: 62 Year
  Sex: Male
  Weight: 70 kg

DRUGS (2)
  1. OLANZAPINE. [Suspect]
     Active Substance: OLANZAPINE
     Indication: DRUG THERAPY
     Route: 048
     Dates: start: 20140312, end: 20140327
  2. RISPERIDONE. [Suspect]
     Active Substance: RISPERIDONE
     Indication: DRUG THERAPY
     Route: 048
     Dates: start: 20140316, end: 20150321

REACTIONS (10)
  - Pyrexia [None]
  - Mental status changes [None]
  - Dysarthria [None]
  - Demyelination [None]
  - Vomiting [None]
  - Cerebral infarction [None]
  - Leukocytosis [None]
  - Encephalitis [None]
  - Blood pressure fluctuation [None]
  - Decubitus ulcer [None]

NARRATIVE: CASE EVENT DATE: 20140318
